FAERS Safety Report 18466315 (Version 8)
Quarter: 2022Q4

REPORT INFORMATION
  Report Type: Spontaneous
  Country: FI (occurrence: FI)
  Receive Date: 20201105
  Receipt Date: 20221125
  Transmission Date: 20230113
  Serious: Yes (Other)
  Sender: FDA-Public Use
  Company Number: FI-BRISTOL-MYERS SQUIBB COMPANY-BMS-2020-090653

PATIENT
  Age: 68 Year
  Sex: Female

DRUGS (10)
  1. EMPLICITI [Suspect]
     Active Substance: ELOTUZUMAB
     Indication: Plasma cell myeloma
     Dosage: 480MG IN DAYS 1, 8, 15 AND 22
     Route: 041
     Dates: start: 202008
  2. EMPLICITI [Suspect]
     Active Substance: ELOTUZUMAB
     Dosage: 900 MILLIGRAM, Q4WK
     Route: 042
     Dates: start: 20201016
  3. DEXAMETHASONE [Suspect]
     Active Substance: DEXAMETHASONE
     Indication: Plasma cell myeloma
     Dosage: 28MG IN DAY 1
     Route: 048
     Dates: start: 202008
  4. DEXAMETHASONE [Suspect]
     Active Substance: DEXAMETHASONE
     Dosage: 40MG IN DAY 8, DAY 15 AND DAY 21
     Route: 048
     Dates: start: 202008
  5. POMALIDOMIDE [Suspect]
     Active Substance: POMALIDOMIDE
     Indication: Plasma cell myeloma
     Dosage: 3MG ONCE DAILY (CYCLE D1-D21).
     Route: 065
  6. POMALIDOMIDE [Suspect]
     Active Substance: POMALIDOMIDE
     Dosage: 4 MILLIGRAM, QD
     Route: 065
     Dates: start: 202008
  7. CARFILZOMIB [Concomitant]
     Active Substance: CARFILZOMIB
     Indication: Product used for unknown indication
     Route: 065
  8. DARATUMUMAB [Concomitant]
     Active Substance: DARATUMUMAB
     Indication: Product used for unknown indication
     Route: 065
  9. DARATUMUMAB [Concomitant]
     Active Substance: DARATUMUMAB
     Route: 065
  10. DARATUMUMAB [Concomitant]
     Active Substance: DARATUMUMAB
     Route: 065

REACTIONS (3)
  - Cytomegalovirus infection [Recovered/Resolved]
  - Erythema [Recovered/Resolved]
  - Muscle spasms [Not Recovered/Not Resolved]
